FAERS Safety Report 7354703-X (Version None)
Quarter: 2011Q1

REPORT INFORMATION
  Report Type: 
  Country: None (occurrence: None)
  Receive Date: 20110316
  Receipt Date: 20110308
  Transmission Date: 20110831
  Serious: Yes (Death, Hospitalization)
  Sender: FDA-Public Use
  Company Number: NL-AMGEN-NLDSP2011013594

PATIENT
  Age: 70 Year
  Sex: Female

DRUGS (8)
  1. ENBREL [Suspect]
     Indication: RHEUMATOID ARTHRITIS
     Dosage: UNK
     Dates: start: 20090901
  2. MELOXICAM [Concomitant]
     Dosage: 7.5 MG, 1X/DAY
  3. PANTOPRAZOL                        /01263202/ [Concomitant]
     Dosage: 40 MG, 1X/DAY
  4. ACTONEL [Concomitant]
     Dosage: 35 MG, WEEKLY
  5. TRAMADOL [Concomitant]
     Dosage: 50 MG, 3X/DAY
  6. CALCICHEW [Concomitant]
     Dosage: 500 MG, UNK
  7. ENALAPRIL MALEATE [Concomitant]
     Dosage: 10 MG, 1X/DAY
  8. PREDNISONE [Concomitant]
     Dosage: 5 MG, UNK

REACTIONS (1)
  - PULMONARY FIBROSIS [None]
